FAERS Safety Report 5654397-5 (Version None)
Quarter: 2008Q1

REPORT INFORMATION
  Report Type: 
  Country: None (occurrence: None)
  Receive Date: 20080306
  Receipt Date: 20080305
  Transmission Date: 20080703
  Serious: No
  Sender: FDA-Public Use
  Company Number: US-BAXTER-2008BH001847

PATIENT
  Age: 46 Year
  Sex: Female
  Weight: 58 kg

DRUGS (2)
  1. HEPARIN SODIUM [Suspect]
     Indication: FIBROMUSCULAR DYSPLASIA
     Route: 058
     Dates: start: 19970101, end: 20080301
  2. RESTORIL [Concomitant]
     Route: 048

REACTIONS (2)
  - INJECTION SITE ABSCESS [None]
  - INJECTION SITE INFECTION [None]
